FAERS Safety Report 22076371 (Version 2)
Quarter: 2023Q2

REPORT INFORMATION
  Report Type: Report from Study
  Country: US (occurrence: US)
  Receive Date: 20230309
  Receipt Date: 20230517
  Transmission Date: 20230722
  Serious: Yes (Hospitalization, Other)
  Sender: FDA-Public Use
  Company Number: US-NPS_Pharmaceuticals-001591

PATIENT
  Age: 55 Year
  Sex: Female
  Weight: 98 kg

DRUGS (18)
  1. TEDUGLUTIDE [Suspect]
     Active Substance: TEDUGLUTIDE
     Indication: Short-bowel syndrome
     Dosage: 5.1 MILLIGRAM, QD
     Route: 042
     Dates: start: 20140424, end: 20141121
  2. TEDUGLUTIDE [Suspect]
     Active Substance: TEDUGLUTIDE
     Indication: Short-bowel syndrome
     Dosage: 5.1 MILLIGRAM, QD
     Route: 042
     Dates: start: 20140424, end: 20141121
  3. TEDUGLUTIDE [Suspect]
     Active Substance: TEDUGLUTIDE
     Indication: Short-bowel syndrome
     Dosage: 5.1 MILLIGRAM, QD
     Route: 042
     Dates: start: 20140424, end: 20141121
  4. TEDUGLUTIDE [Suspect]
     Active Substance: TEDUGLUTIDE
     Indication: Short-bowel syndrome
     Dosage: 5.1 MILLIGRAM, QD
     Route: 042
     Dates: start: 20140424, end: 20141121
  5. TEDUGLUTIDE [Suspect]
     Active Substance: TEDUGLUTIDE
     Dosage: 5 MILLIGRAM, QD
     Route: 042
     Dates: start: 20150609, end: 20151110
  6. TEDUGLUTIDE [Suspect]
     Active Substance: TEDUGLUTIDE
     Dosage: 5 MILLIGRAM, QD
     Route: 042
     Dates: start: 20150609, end: 20151110
  7. TEDUGLUTIDE [Suspect]
     Active Substance: TEDUGLUTIDE
     Dosage: 5 MILLIGRAM, QD
     Route: 042
     Dates: start: 20150609, end: 20151110
  8. TEDUGLUTIDE [Suspect]
     Active Substance: TEDUGLUTIDE
     Dosage: 5 MILLIGRAM, QD
     Route: 042
     Dates: start: 20150609, end: 20151110
  9. DICLOFENAC SODIUM [Concomitant]
     Active Substance: DICLOFENAC SODIUM
     Indication: Arthralgia
     Dosage: 1 DOSAGE FORM
     Route: 061
     Dates: start: 20140106
  10. CYANOCOBALAMIN [Concomitant]
     Active Substance: CYANOCOBALAMIN
     Indication: Short-bowel syndrome
     Dosage: 1000 MICROGRAM
     Route: 058
     Dates: start: 20141028
  11. INSULIN ASPART [Concomitant]
     Active Substance: INSULIN ASPART
     Indication: Diabetes mellitus
     Dosage: 15 MILLILITER
     Route: 058
     Dates: start: 20141211
  12. TRAZODONE [Concomitant]
     Active Substance: TRAZODONE HYDROCHLORIDE
     Indication: Sleep apnoea syndrome
     Dosage: 100 MILLIGRAM, QD
     Route: 048
     Dates: start: 20141218
  13. VANCOMYCIN [Concomitant]
     Active Substance: VANCOMYCIN
     Indication: Bacteraemia
     Dosage: 1.5 MILLIGRAM, QD
     Route: 065
     Dates: start: 20141208, end: 20141209
  14. LORAZEPAM [Concomitant]
     Active Substance: LORAZEPAM
     Indication: Anxiety
     Dosage: 1 MILLIGRAM
     Route: 042
     Dates: start: 20201101, end: 20201103
  15. LORAZEPAM [Concomitant]
     Active Substance: LORAZEPAM
     Indication: Agitation
  16. HYDROMORPHONE [Concomitant]
     Active Substance: HYDROMORPHONE
     Indication: Pain
     Dosage: 0.50 MILLIGRAM
     Route: 042
     Dates: start: 20201031, end: 20201103
  17. HALOPERIDOL [Concomitant]
     Active Substance: HALOPERIDOL
     Indication: Agitation
     Dosage: 2.00 MILLIGRAM
     Route: 042
     Dates: start: 20201029, end: 20201030
  18. DIPHENHYDRAMINE [Concomitant]
     Active Substance: DIPHENHYDRAMINE
     Dosage: 25 MILLIGRAM, QD
     Route: 048
     Dates: start: 20201028, end: 20201028

REACTIONS (2)
  - Sepsis [Recovered/Resolved]
  - Enterococcal bacteraemia [Recovered/Resolved]

NARRATIVE: CASE EVENT DATE: 20141208
